FAERS Safety Report 14521019 (Version 7)
Quarter: 2020Q3

REPORT INFORMATION
  Report Type: Spontaneous
  Country: DE (occurrence: DE)
  Receive Date: 20180212
  Receipt Date: 20200821
  Transmission Date: 20201104
  Serious: Yes (Life-Threatening, Hospitalization, Other)
  Sender: FDA-Public Use
  Company Number: PHHY2017DE199364

PATIENT
  Age: 44 Year
  Sex: Male

DRUGS (8)
  1. IBUPROFEN. [Suspect]
     Active Substance: IBUPROFEN
     Indication: ARTHRALGIA
     Dosage: (AS NEEDED)
     Route: 065
  2. ETORICOXIB. [Suspect]
     Active Substance: ETORICOXIB
     Indication: ARTHRALGIA
     Dosage: UNK
     Route: 048
  3. ALLOPURINOL. [Suspect]
     Active Substance: ALLOPURINOL
     Indication: HYPERURICAEMIA
     Dosage: LONG TERM THERAPY
     Route: 065
  4. PREDNISOLONE. [Suspect]
     Active Substance: PREDNISOLONE
     Dosage: 3 MG/KG, BIW
     Route: 042
  5. IBUPROFEN. [Suspect]
     Active Substance: IBUPROFEN
     Indication: HYPERURICAEMIA
  6. ALLOPURINOL. [Suspect]
     Active Substance: ALLOPURINOL
     Indication: ARTHRALGIA
     Dosage: UNK
     Route: 048
  7. PREDNISOLONE. [Suspect]
     Active Substance: PREDNISOLONE
     Indication: TOXIC EPIDERMAL NECROLYSIS
     Dosage: 1 MG/KG, BIW
     Route: 042
  8. ETORICOXIB. [Suspect]
     Active Substance: ETORICOXIB
     Indication: HYPERURICAEMIA

REACTIONS (23)
  - Intensive care unit acquired weakness [Recovered/Resolved]
  - Rash [Recovered/Resolved]
  - Skin exfoliation [Recovered/Resolved]
  - Respiratory fatigue [Recovered/Resolved]
  - Coating in mouth [Recovered/Resolved]
  - Drug ineffective [Unknown]
  - Renal failure [Recovered/Resolved]
  - Toxic epidermal necrolysis [Recovered/Resolved]
  - Dysphagia [Recovered/Resolved]
  - Prerenal failure [Recovered/Resolved]
  - Scab [Recovered/Resolved]
  - Enterococcal infection [Recovered/Resolved]
  - Post inflammatory pigmentation change [Recovered/Resolved]
  - Oral mucosa erosion [Recovered/Resolved]
  - Staphylococcal infection [Recovered/Resolved]
  - Erythema [Recovered/Resolved]
  - Dehydration [Recovered/Resolved]
  - Pain [Recovered/Resolved]
  - Mucosal necrosis [Recovered/Resolved]
  - Lip erosion [Recovered/Resolved]
  - Pruritus [Recovered/Resolved]
  - Blister [Recovered/Resolved]
  - Conjunctivitis [Recovered/Resolved]
